FAERS Safety Report 7337810-7 (Version None)
Quarter: 2011Q1

REPORT INFORMATION
  Report Type: 
  Country: None (occurrence: None)
  Receive Date: 20110308
  Receipt Date: 20110228
  Transmission Date: 20110831
  Serious: Yes (Hospitalization, Other)
  Sender: FDA-Public Use
  Company Number: JP-ROCHE-746646

PATIENT
  Sex: Female
  Weight: 64 kg

DRUGS (26)
  1. ACTEMRA [Suspect]
     Route: 041
     Dates: start: 20100402, end: 20100402
  2. PREDNISOLONE SODIUM SUCCINATE INJ [Concomitant]
     Route: 042
     Dates: start: 20091113, end: 20091113
  3. ACTEMRA [Suspect]
     Route: 041
     Dates: start: 20100205, end: 20100205
  4. PREDONINE [Concomitant]
     Dosage: FORM: PER ORAL AGENT
     Route: 048
  5. PREDNISOLONE SODIUM SUCCINATE INJ [Concomitant]
     Route: 042
     Dates: start: 20100108, end: 20100108
  6. ACTEMRA [Suspect]
     Route: 041
     Dates: start: 20091211, end: 20091211
  7. PREDNISOLONE SODIUM SUCCINATE INJ [Concomitant]
     Route: 042
     Dates: start: 20100402, end: 20100402
  8. TEPRENONE [Concomitant]
     Route: 048
     Dates: end: 20100827
  9. PREDNISOLONE SODIUM SUCCINATE INJ [Concomitant]
     Route: 042
     Dates: start: 20091211, end: 20091211
  10. PREDNISOLONE SODIUM SUCCINATE INJ [Concomitant]
     Route: 042
     Dates: start: 20100305, end: 20100305
  11. FOLIAMIN [Concomitant]
     Route: 048
     Dates: end: 20100827
  12. BONALON [Concomitant]
     Route: 048
     Dates: start: 20070112, end: 20100827
  13. BAKTAR [Concomitant]
     Route: 048
     Dates: start: 20101027
  14. ACTEMRA [Suspect]
     Route: 041
     Dates: start: 20100305, end: 20100305
  15. PREDNISOLONE SODIUM SUCCINATE INJ [Concomitant]
     Route: 042
     Dates: start: 20100205, end: 20100205
  16. LOXONIN [Concomitant]
     Dosage: FORM: PER ORAL AGENT
     Route: 048
  17. SIMVASTATIN [Concomitant]
     Dosage: FORM: PER ORAL AGENT
     Route: 048
  18. ACTONEL [Concomitant]
     Dosage: FORM: PER ORAL AGENT
     Route: 048
  19. ACTEMRA [Suspect]
     Indication: RHEUMATOID ARTHRITIS
     Route: 041
     Dates: start: 20091113, end: 20091113
  20. ACTEMRA [Suspect]
     Route: 041
     Dates: start: 20100108, end: 20100108
  21. METOLATE [Concomitant]
     Dosage: FORM: PER ORAL AGENT
     Route: 048
  22. NORVASC [Concomitant]
     Dosage: FORM: PER ORAL AGENT
     Route: 048
  23. SIMVASTATIN [Concomitant]
     Route: 048
     Dates: end: 20100827
  24. SELBEX [Concomitant]
     Dosage: FORM: PER ORAL AGENT
     Route: 048
  25. ACTEMRA [Suspect]
     Route: 041
     Dates: start: 20100430, end: 20100730
  26. KENTAN [Concomitant]
     Route: 048
     Dates: end: 20100827

REACTIONS (2)
  - DIABETES MELLITUS [None]
  - HODGKIN'S DISEASE [None]
